FAERS Safety Report 8972425 (Version 1)
Quarter: 2012Q4

REPORT INFORMATION
  Report Type: 
  Country: US (occurrence: US)
  Receive Date: 20121219
  Receipt Date: 20121219
  Transmission Date: 20130627
  Serious: Yes (Hospitalization, Other)
  Sender: FDA-Public Use
  Company Number: US-PFIZER INC-2012316360

PATIENT
  Sex: Female
  Weight: 90.7 kg

DRUGS (6)
  1. LIPITOR [Suspect]
     Indication: BLOOD CHOLESTEROL ABNORMAL
     Dosage: UNK ,daily
  2. ATORVASTATIN CALCIUM [Suspect]
     Indication: BLOOD CHOLESTEROL ABNORMAL
     Dosage: UNK, daily
  3. ADVIL [Suspect]
     Indication: MUSCLE PAIN
     Dosage: UNK (6-8 tablets in a day)
  4. POTASSIUM CHLORIDE [Suspect]
     Dosage: 10 mg, UNK
  5. ATENOLOL [Suspect]
     Indication: BLOOD PRESSURE HIGH
     Dosage: UNK
  6. LOSARTAN POTASSIUM W/HYDROCHLOROTHIAZIDE [Suspect]
     Indication: BLOOD PRESSURE HIGH
     Dosage: UNK

REACTIONS (17)
  - Medication error [Unknown]
  - Blood sodium decreased [Unknown]
  - Blood potassium decreased [Unknown]
  - Shoulder arthroplasty [Unknown]
  - Knee arthroplasty [Unknown]
  - Kidney infection [Unknown]
  - Urinary tract infection [Unknown]
  - Lower limb fracture [Unknown]
  - Blood pressure decreased [Unknown]
  - Renal disorder [Unknown]
  - Gait disturbance [Unknown]
  - Balance disorder [Unknown]
  - Muscle disorder [Unknown]
  - Tinnitus [Unknown]
  - Myalgia [Unknown]
  - Heart rate increased [Unknown]
  - Weight increased [Unknown]
